FAERS Safety Report 11374697 (Version 7)
Quarter: 2016Q2

REPORT INFORMATION
  Report Type: Report from Study
  Country: US (occurrence: US)
  Receive Date: 20150813
  Receipt Date: 20160513
  Transmission Date: 20160815
  Serious: Yes (Hospitalization, Other)
  Sender: FDA-Public Use
  Company Number: US-AMGEN-USASL2015081923

PATIENT
  Age: 53 Year
  Sex: Female

DRUGS (4)
  1. ENBREL [Suspect]
     Active Substance: ETANERCEPT
     Dosage: UNK UNK, UNK
     Route: 065
  2. ENBREL [Suspect]
     Active Substance: ETANERCEPT
     Indication: ANKYLOSING SPONDYLITIS
     Dosage: 50 MG, QWK
     Route: 058
  3. ENBREL [Suspect]
     Active Substance: ETANERCEPT
     Dosage: UNK
     Route: 065
  4. ENBREL [Suspect]
     Active Substance: ETANERCEPT
     Dosage: UNK, UNK
     Route: 065

REACTIONS (21)
  - Unevaluable event [Unknown]
  - Skin burning sensation [Unknown]
  - Joint dislocation [Unknown]
  - Exostosis [Unknown]
  - Product contamination [Unknown]
  - Ovarian cancer [Unknown]
  - Incorrect dose administered by device [Unknown]
  - Rotator cuff syndrome [Unknown]
  - Muscle disorder [Unknown]
  - Gait disturbance [Unknown]
  - Product contamination [Unknown]
  - Mobility decreased [Unknown]
  - Vaginal haemorrhage [Unknown]
  - Red blood cell sedimentation rate increased [Unknown]
  - Device issue [Unknown]
  - Drug dose omission [Unknown]
  - Lymphadenopathy [Unknown]
  - Muscular weakness [Unknown]
  - Pain [Unknown]
  - Pain in extremity [Unknown]
  - Arthralgia [Unknown]

NARRATIVE: CASE EVENT DATE: 2015
